FAERS Safety Report 12491901 (Version 1)
Quarter: 2016Q2

REPORT INFORMATION
  Report Type: Spontaneous
  Country: US (occurrence: None)
  Receive Date: 20160622
  Receipt Date: 20160622
  Transmission Date: 20160815
  Serious: Yes (Hospitalization)
  Sender: FDA-Public Use
  Company Number: None

PATIENT
  Age: 46 Year
  Sex: Male
  Weight: 72.3 kg

DRUGS (15)
  1. MIDODRINE [Concomitant]
     Active Substance: MIDODRINE
  2. NORFLOXACIN [Concomitant]
     Active Substance: NORFLOXACIN
  3. ZINC [Concomitant]
     Active Substance: ZINC\ZINC CHLORIDE
  4. RIBAVIRIN 1000 MG [Suspect]
     Active Substance: RIBAVIRIN
     Indication: HEPATITIS C
     Route: 048
     Dates: start: 20140211, end: 20140730
  5. LACTULOSE. [Concomitant]
     Active Substance: LACTULOSE
  6. MAGNESIUM [Concomitant]
     Active Substance: MAGNESIUM
  7. PROGRAF [Concomitant]
     Active Substance: TACROLIMUS\TACROLIMUS ANHYDROUS
  8. RIFAXIMIN [Concomitant]
     Active Substance: RIFAXIMIN
  9. TESTOSTERONE. [Concomitant]
     Active Substance: TESTOSTERONE
  10. PREDNISONE. [Concomitant]
     Active Substance: PREDNISONE
  11. BUMETANIDE. [Concomitant]
     Active Substance: BUMETANIDE
  12. SOFOSBUVIR 400 GILEAD SCIENCES, INC. [Suspect]
     Active Substance: SOFOSBUVIR
     Indication: HEPATITIS C
     Route: 048
     Dates: start: 20140211, end: 20140730
  13. EPLERENONE. [Concomitant]
     Active Substance: EPLERENONE
  14. PROTONIX [Concomitant]
     Active Substance: PANTOPRAZOLE SODIUM
  15. SALINE [Concomitant]
     Active Substance: SODIUM CHLORIDE

REACTIONS (1)
  - Hepatic encephalopathy [None]

NARRATIVE: CASE EVENT DATE: 20140315
